FAERS Safety Report 6004821-3 (Version None)
Quarter: 2008Q4

REPORT INFORMATION
  Report Type: 
  Country: None (occurrence: None)
  Receive Date: 20081215
  Receipt Date: 20080827
  Transmission Date: 20090506
  Serious: Yes (Other)
  Sender: FDA-Public Use
  Company Number: 08-355

PATIENT
  Age: 30 Year
  Sex: Male
  Weight: 90.7194 kg

DRUGS (1)
  1. ALEVE [Suspect]
     Indication: BACK PAIN
     Dosage: 2640 MG, DAILY, ORAL
     Route: 048
     Dates: start: 20080729

REACTIONS (2)
  - DYSURIA [None]
  - HAEMATURIA [None]
